FAERS Safety Report 6669830-X (Version None)
Quarter: 2010Q2

REPORT INFORMATION
  Report Type: 
  Country: None (occurrence: None)
  Receive Date: 20100406
  Receipt Date: 20100113
  Transmission Date: 20101027
  Serious: No
  Sender: FDA-Public Use
  Company Number: US-ALLERGAN-0908446US

PATIENT
  Age: 51 Year
  Sex: Female

DRUGS (4)
  1. LATISSE [Suspect]
     Indication: GROWTH OF EYELASHES
     Dosage: UNK, QHS
     Route: 061
     Dates: start: 20090501
  2. PERCEPTIN [Concomitant]
     Indication: BREAST CANCER
     Dosage: UNK, Q 3 WEEKS
     Route: 042
  3. LEXAPRO [Concomitant]
  4. ATIVAN [Concomitant]

REACTIONS (3)
  - DRUG ADMINISTERED AT INAPPROPRIATE SITE [None]
  - MADAROSIS [None]
  - TRICHORRHEXIS [None]
